FAERS Safety Report 7258752-1 (Version None)
Quarter: 2011Q1

REPORT INFORMATION
  Report Type: 
  Country: None (occurrence: None)
  Receive Date: 20110129
  Receipt Date: 20100601
  Transmission Date: 20110831
  Serious: No
  Sender: FDA-Public Use
  Company Number: US-ABBOTT-10P-163-0648145-00

PATIENT
  Age: 35 Year
  Sex: Female

DRUGS (12)
  1. MAXAL [Concomitant]
     Indication: MIGRAINE
  2. PROTONIX [Concomitant]
     Indication: GASTROOESOPHAGEAL REFLUX DISEASE
  3. ROCEPHIN [Concomitant]
     Indication: SINUSITIS
  4. PROTOPIC [Concomitant]
     Indication: PRODUCT USED FOR UNKNOWN INDICATION
  5. KADIAN [Concomitant]
     Indication: PAIN
  6. AMBIEN [Concomitant]
     Indication: INSOMNIA
     Dosage: AT BEDTIME
  7. PREDNISONE [Concomitant]
     Indication: PSORIASIS
  8. CODEINE [Concomitant]
     Indication: DIARRHOEA
  9. HUMIRA [Suspect]
     Indication: CROHN'S DISEASE
     Dates: start: 20090801
  10. OLEX-E [Concomitant]
     Indication: PSORIASIS
  11. PHENERGAN [Concomitant]
     Indication: NAUSEA
  12. XANAX [Concomitant]
     Indication: ANXIETY

REACTIONS (2)
  - PYREXIA [None]
  - SINUSITIS [None]
